FAERS Safety Report 9031868 (Version 2)
Quarter: 2013Q1

REPORT INFORMATION
  Report Type: Spontaneous
  Country: FR (occurrence: FR)
  Receive Date: 20130124
  Receipt Date: 20130129
  Transmission Date: 20140127
  Serious: Yes (Other)
  Sender: FDA-Public Use
  Company Number: FR-UCBSA-076030

PATIENT
  Age: 57 Year
  Sex: Female
  Weight: 66 kg

DRUGS (8)
  1. CIMZIA [Suspect]
     Indication: RHEUMATOID ARTHRITIS
     Route: 058
     Dates: start: 201202
  2. METHOTREXATE [Concomitant]
     Indication: RHEUMATOID ARTHRITIS
     Dosage: 12.5 MG WEEKLY
     Route: 048
     Dates: start: 1992
  3. MOPRAL [Concomitant]
     Dosage: UNKNOWN DOSE
  4. CARDENSIEL [Concomitant]
     Dosage: 1.25 MG
     Route: 048
  5. CORTANCYL [Concomitant]
     Indication: RHEUMATOID ARTHRITIS
     Dosage: 6.5 MG DAILY
     Route: 048
     Dates: start: 1987
  6. NAPROSYNE [Concomitant]
     Dosage: UNKNOWN DOSE
     Route: 048
  7. LAROXYL [Concomitant]
     Dosage: UNKNOWN DOSE
  8. MYOLASTAN [Concomitant]
     Dosage: UNKNOWN DOSE

REACTIONS (1)
  - Dermatitis bullous [Recovered/Resolved]
